FAERS Safety Report 6191453-X (Version None)
Quarter: 2009Q2

REPORT INFORMATION
  Report Type: 
  Country: None (occurrence: None)
  Receive Date: 20090515
  Receipt Date: 20090515
  Transmission Date: 20091009
  Serious: Yes (Other)
  Sender: FDA-Public Use
  Company Number: US-PFIZER INC-2008095113

PATIENT
  Sex: Male

DRUGS (1)
  1. VIAGRA [Suspect]

REACTIONS (5)
  - CHEMOTHERAPY [None]
  - ERECTILE DYSFUNCTION [None]
  - FLUSHING [None]
  - HEADACHE [None]
  - RADIOTHERAPY [None]
